FAERS Safety Report 4902776-3 (Version None)
Quarter: 2006Q1

REPORT INFORMATION
  Report Type: 
  Country: None (occurrence: None)
  Receive Date: 20060207
  Receipt Date: 20060202
  Transmission Date: 20060701
  Serious: Yes (Hospitalization)
  Sender: FDA-Public Use
  Company Number: US-GLAXOSMITHKLINE-A0592133A

PATIENT
  Age: 74 Year
  Sex: Female

DRUGS (3)
  1. COREG [Suspect]
     Indication: CARDIAC FAILURE CONGESTIVE
     Dosage: 12.5MG TWICE PER DAY
     Route: 048
  2. BLOOD PRESSURE MEDICATION [Concomitant]
  3. MULTIPLE MEDICATIONS [Concomitant]

REACTIONS (4)
  - ATRIAL FIBRILLATION [None]
  - BLOOD PRESSURE DECREASED [None]
  - CORONARY ARTERY OCCLUSION [None]
  - DIZZINESS [None]
